FAERS Safety Report 26140254 (Version 1)
Quarter: 2025Q4

REPORT INFORMATION
  Report Type: Spontaneous
  Country: KR (occurrence: KR)
  Receive Date: 20251210
  Receipt Date: 20251210
  Transmission Date: 20260117
  Serious: Yes (Death, Other)
  Sender: AMGEN
  Company Number: KR-AMGEN-KORSP2025243370

PATIENT

DRUGS (1)
  1. ETANERCEPT [Suspect]
     Active Substance: ETANERCEPT
     Indication: Product used for unknown indication
     Dosage: UNK
     Route: 065

REACTIONS (6)
  - Guillain-Barre syndrome [Fatal]
  - Multiple sclerosis [Fatal]
  - Neuromyelitis optica spectrum disorder [Fatal]
  - Optic neuritis [Fatal]
  - Myelitis transverse [Not Recovered/Not Resolved]
  - Bell^s palsy [Not Recovered/Not Resolved]
